FAERS Safety Report 4478653-1 (Version None)
Quarter: 2004Q3

REPORT INFORMATION
  Report Type: 
  Country: None (occurrence: None)
  Receive Date: 20040923
  Receipt Date: 20040610
  Transmission Date: 20050211
  Serious: Yes (Hospitalization)
  Sender: FDA-Public Use
  Company Number: 207132

PATIENT
  Age: 75 Year
  Sex: Male

DRUGS (15)
  1. AVASTIN [Suspect]
     Indication: COLON CANCER METASTATIC
     Dosage: 5 MG/KG, Q2W, INTRAVENOUS
     Route: 042
     Dates: start: 20040323
  2. CAMPTOSAR [Concomitant]
  3. DIGOXIN [Concomitant]
  4. COUMADIN [Concomitant]
  5. LASIX [Concomitant]
  6. ATENOLOL [Concomitant]
  7. VIOXX [Concomitant]
  8. PLAQUENIL [Concomitant]
  9. POTASSIUM (POTASSIUM NOS) [Concomitant]
  10. PROSCAR [Concomitant]
  11. ELAVIL [Concomitant]
  12. AMBIEN [Concomitant]
  13. XALATAN EYE GTTS. (LATANOPROST) [Concomitant]
  14. MAGNESIUM OXIDE (MAGNESIUM OXIDE) [Concomitant]
  15. NTG (NITROGLYCERIN) [Concomitant]

REACTIONS (1)
  - INTESTINAL STOMA SITE BLEEDING [None]
